FAERS Safety Report 7579099-X (Version None)
Quarter: 2011Q2

REPORT INFORMATION
  Report Type: 
  Country: None (occurrence: None)
  Receive Date: 20110628
  Receipt Date: 20110621
  Transmission Date: 20111010
  Serious: Yes (Hospitalization)
  Sender: FDA-Public Use
  Company Number: US-PFIZER INC-2011138573

PATIENT
  Age: 71 Year
  Sex: Male
  Weight: 86.984 kg

DRUGS (3)
  1. BLINDED THERAPY [Suspect]
     Indication: CORONARY ARTERY DISEASE
     Dosage: LOADING DOSE
     Route: 048
     Dates: start: 20090811, end: 20090811
  2. CLINDAMYCIN PHOSPHATE [Suspect]
     Dosage: 900 MG, SINGLE
     Route: 042
     Dates: start: 20091002, end: 20091002
  3. BLINDED THERAPY [Suspect]
     Dosage: 2.5 MG, 1X/DAY
     Route: 048
     Dates: start: 20090812, end: 20090822

REACTIONS (2)
  - GROIN ABSCESS [None]
  - CELLULITIS [None]
